FAERS Safety Report 5903412-X (Version None)
Quarter: 2008Q3

REPORT INFORMATION
  Report Type: 
  Country: None (occurrence: None)
  Receive Date: 20080930
  Receipt Date: 20080925
  Transmission Date: 20090109
  Serious: Yes (Hospitalization)
  Sender: FDA-Public Use
  Company Number: DE-BAYER-200826691GPV

PATIENT
  Age: 68 Year
  Sex: Female
  Weight: 61 kg

DRUGS (2)
  1. SORAFENIB OR PLACEBO [Suspect]
     Indication: BILIARY CANCER METASTATIC
     Dosage: TOTAL DAILY DOSE: 800 MG
     Route: 048
     Dates: start: 20080811, end: 20080910
  2. GEMCITABINE HCL [Suspect]
     Indication: BILIARY CANCER METASTATIC
     Route: 042
     Dates: start: 20080811, end: 20080908

REACTIONS (4)
  - CONFUSIONAL STATE [None]
  - HEADACHE [None]
  - PSYCHOTIC DISORDER [None]
  - VISION BLURRED [None]
